FAERS Safety Report 4409549-9 (Version None)
Quarter: 2004Q3

REPORT INFORMATION
  Report Type: 
  Country: None (occurrence: None)
  Receive Date: 20040727
  Receipt Date: 20040727
  Transmission Date: 20050211
  Serious: Yes (Other)
  Sender: FDA-Public Use
  Company Number: None

PATIENT
  Sex: Female

DRUGS (3)
  1. ARIMIDEX [Suspect]
     Indication: BREAST CANCER
     Dosage: 1 MG PO QD
     Route: 048
     Dates: start: 20040527
  2. PROTONIX [Concomitant]
  3. ALLEGRA [Concomitant]

REACTIONS (1)
  - HAIR GROWTH ABNORMAL [None]
